FAERS Safety Report 22287563 (Version 1)
Quarter: 2023Q2

REPORT INFORMATION
  Report Type: Spontaneous
  Country: US (occurrence: US)
  Receive Date: 20230505
  Receipt Date: 20230505
  Transmission Date: 20230721
  Serious: No
  Sender: FDA-Public Use
  Company Number: US-SA-SAC20230504000881

PATIENT
  Sex: Female

DRUGS (1)
  1. DUPIXENT [Suspect]
     Active Substance: DUPILUMAB
     Dosage: 300 MG, OTHER
     Route: 058

REACTIONS (7)
  - Injection site pain [Unknown]
  - Decreased appetite [Unknown]
  - Neuralgia [Unknown]
  - Hypersensitivity [Unknown]
  - Urticaria [Unknown]
  - Swelling [Unknown]
  - Dyspnoea [Unknown]
